FAERS Safety Report 13651306 (Version 1)
Quarter: 2017Q2

REPORT INFORMATION
  Report Type: Spontaneous
  Country: US (occurrence: US)
  Receive Date: 20170614
  Receipt Date: 20170614
  Transmission Date: 20170830
  Serious: No
  Sender: FDA-Public Use
  Company Number: US-PFIZER INC-2017255495

PATIENT
  Age: 66 Year
  Sex: Female
  Weight: 57 kg

DRUGS (3)
  1. CHANTIX [Suspect]
     Active Substance: VARENICLINE TARTRATE
     Indication: SMOKING CESSATION THERAPY
     Dosage: CHANTIX STARTER PACK
     Dates: start: 201701, end: 201701
  2. SERTRALINE [Concomitant]
     Active Substance: SERTRALINE HYDROCHLORIDE
     Indication: DEPRESSION
     Dosage: 50 MG, 1X/DAY
     Route: 048
  3. OXYCODONE AND ACETAMINOPHEN [Concomitant]
     Active Substance: ACETAMINOPHEN\OXYCODONE HYDROCHLORIDE
     Indication: MULTIPLE SCLEROSIS
     Dosage: 1 DF, 4X/DAY; [OXYCODONE 10MG] / [ACETAMINOPHEN 325MG]
     Route: 048

REACTIONS (1)
  - Abnormal dreams [Recovered/Resolved]

NARRATIVE: CASE EVENT DATE: 201701
